FAERS Safety Report 18398686 (Version 5)
Quarter: 2020Q4

REPORT INFORMATION
  Report Type: Spontaneous
  Country: US (occurrence: US)
  Receive Date: 20201019
  Receipt Date: 20201105
  Transmission Date: 20210114
  Serious: Yes (Other)
  Sender: FDA-Public Use
  Company Number: US-GLAXOSMITHKLINE-US2020AMR205426

PATIENT
  Sex: Female

DRUGS (1)
  1. ZEJULA [Suspect]
     Active Substance: NIRAPARIB
     Indication: OVARIAN CANCER
     Dosage: 300 MG, QD (QPM)
     Route: 048
     Dates: start: 20201006, end: 20201014

REACTIONS (4)
  - Blood test abnormal [Unknown]
  - Platelet count decreased [Unknown]
  - Renal impairment [Unknown]
  - Product dose omission issue [Unknown]
